FAERS Safety Report 4619686-1 (Version None)
Quarter: 2005Q1

REPORT INFORMATION
  Report Type: 
  Country: None (occurrence: None)
  Receive Date: 20050324
  Receipt Date: 20050313
  Transmission Date: 20050727
  Serious: Yes (Hospitalization)
  Sender: FDA-Public Use
  Company Number: 2005044307

PATIENT
  Sex: Female

DRUGS (2)
  1. ZOLOFT [Suspect]
     Indication: ILL-DEFINED DISORDER
     Dosage: 150 MG 1 D, ORAL
     Route: 048
     Dates: start: 20050101
  2. DOXEPIN HCL [Concomitant]

REACTIONS (1)
  - INTESTINAL OBSTRUCTION [None]
